FAERS Safety Report 19497821 (Version 2)
Quarter: 2022Q4

REPORT INFORMATION
  Report Type: Spontaneous
  Country: DE (occurrence: DE)
  Receive Date: 20210706
  Receipt Date: 20221101
  Transmission Date: 20230113
  Serious: Yes (Hospitalization)
  Sender: FDA-Public Use
  Company Number: DE-ADRED-06672-01

PATIENT
  Age: 81 Year
  Sex: Female

DRUGS (5)
  1. VERAPAMIL [Suspect]
     Active Substance: VERAPAMIL HYDROCHLORIDE
     Indication: Product used for unknown indication
     Dosage: 80 MILLIGRAM DAILY; 1-0-0-0
  2. FLUTICASONE PROPIONATE\SALMETEROL XINAFOATE [Concomitant]
     Active Substance: FLUTICASONE PROPIONATE\SALMETEROL XINAFOATE
     Indication: Product used for unknown indication
     Dosage: 2 DOSAGE FORMS DAILY; 500 | 50 MCG, 1-0-1-0,  50G/500G DISKUS
  3. LEVOTHYROXINE SODIUM [Concomitant]
     Active Substance: LEVOTHYROXINE SODIUM
     Indication: Product used for unknown indication
     Dosage: 75 MICROGRAM DAILY; 1-0-0-0
  4. CANDESARTAN [Concomitant]
     Active Substance: CANDESARTAN
     Indication: Product used for unknown indication
     Dosage: 4 MILLIGRAM DAILY;  1-0-0-0
  5. METHOTREXATE [Concomitant]
     Active Substance: METHOTREXATE
     Indication: Product used for unknown indication
     Dosage: 17.5 MG
     Route: 030

REACTIONS (9)
  - Hypertension [Unknown]
  - Performance status decreased [Unknown]
  - Dizziness [Unknown]
  - Headache [Unknown]
  - Bradycardia [Unknown]
  - Fatigue [Unknown]
  - Angina pectoris [Unknown]
  - Atrioventricular block complete [Unknown]
  - Bundle branch block right [Unknown]
